FAERS Safety Report 14927635 (Version 6)
Quarter: 2018Q4

REPORT INFORMATION
  Report Type: Report from Study
  Country: HU (occurrence: HU)
  Receive Date: 20180523
  Receipt Date: 20181218
  Transmission Date: 20190204
  Serious: Yes (Hospitalization, Other)
  Sender: FDA-Public Use
  Company Number: HU-ROCHE-2112498

PATIENT
  Age: 55 Year
  Sex: Female
  Weight: 57 kg

DRUGS (19)
  1. NEODOLPASSE [Concomitant]
     Indication: CANCER PAIN
     Route: 065
     Dates: start: 20180502, end: 20180506
  2. COBIMETINIB. [Suspect]
     Active Substance: COBIMETINIB
     Indication: SQUAMOUS CELL CARCINOMA OF HEAD AND NECK
     Dosage: DATE OF MOST RECENT DOSE OF COBIMETINIB PRIOR TO AE ONSET 20/APR/2018?DATE OF MOST RECENT DOSE OF CO
     Route: 048
     Dates: start: 20180416
  3. DUROGESIC [Concomitant]
     Active Substance: FENTANYL
     Indication: CANCER PAIN
     Route: 065
     Dates: start: 2017
  4. MATRIFEN [Concomitant]
     Active Substance: FENTANYL
     Indication: CANCER PAIN
     Route: 065
     Dates: start: 20180523
  5. CLEXANE [Concomitant]
     Active Substance: ENOXAPARIN SODIUM
     Route: 065
     Dates: start: 20180515
  6. RED BLOOD CELLS [Concomitant]
     Active Substance: HUMAN RED BLOOD CELL
     Indication: ANAEMIA
     Route: 065
     Dates: start: 20180529, end: 20180529
  7. CALCIMUSC [Concomitant]
     Active Substance: CALCIUM GLUCONATE
     Indication: FACE OEDEMA
     Route: 065
     Dates: start: 20180522
  8. PANTOPRAZOLE [Concomitant]
     Active Substance: PANTOPRAZOLE
     Indication: HYPERCHLORHYDRIA
     Route: 065
     Dates: start: 2016
  9. ALGOPYRIN [Concomitant]
     Active Substance: METAMIZOLE SODIUM
     Indication: CANCER PAIN
     Route: 065
     Dates: start: 20180423
  10. STILNOX [Concomitant]
     Active Substance: ZOLPIDEM TARTRATE
     Route: 065
     Dates: start: 20180423
  11. INDOMETACIN [Concomitant]
     Active Substance: INDOMETHACIN
     Indication: CANCER PAIN
     Route: 065
     Dates: start: 20180424
  12. LENDORMIN [Concomitant]
     Active Substance: BROTIZOLAM
     Indication: INSOMNIA
     Route: 065
     Dates: start: 20180428
  13. TEGRETOL [Concomitant]
     Active Substance: CARBAMAZEPINE
     Indication: CANCER PAIN
     Route: 065
     Dates: start: 20180505
  14. FRONTIN [Concomitant]
     Active Substance: ALPRAZOLAM
     Route: 065
     Dates: start: 20180423
  15. CERUCAL [Concomitant]
     Active Substance: METOCLOPRAMIDE HYDROCHLORIDE
     Indication: NAUSEA
     Route: 065
     Dates: start: 20180502, end: 20180502
  16. ANALGESIN FORTE [Concomitant]
     Indication: CANCER PAIN
     Route: 065
     Dates: start: 20180607
  17. ATEZOLIZUMAB. [Suspect]
     Active Substance: ATEZOLIZUMAB
     Indication: SQUAMOUS CELL CARCINOMA OF HEAD AND NECK
     Dosage: DATE OF MOST RECENT DOSE OF ATEZOLIZUMAB PRIOR TO AE ONSET 16/APR/2018?DATE OF MOST RECENT DOSE OF A
     Route: 042
     Dates: start: 20180416
  18. CONTRAMAL [Concomitant]
     Active Substance: TRAMADOL HYDROCHLORIDE
     Indication: CANCER PAIN
     Route: 065
     Dates: start: 20180501
  19. CATAFLAM [Concomitant]
     Active Substance: DICLOFENAC POTASSIUM
     Indication: CANCER PAIN
     Route: 065
     Dates: start: 20180525

REACTIONS (2)
  - Pericarditis [Not Recovered/Not Resolved]
  - Tumour haemorrhage [Recovered/Resolved]

NARRATIVE: CASE EVENT DATE: 20180421
